FAERS Safety Report 8302158-0 (Version None)
Quarter: 2012Q1

REPORT INFORMATION
  Report Type: 
  Country: None (occurrence: None)
  Receive Date: 20120326
  Receipt Date: 20110706
  Transmission Date: 20120608
  Serious: Yes (Other)
  Sender: FDA-Public Use
  Company Number: PHHY2011US05828

PATIENT
  Age: 54 Year
  Sex: Female

DRUGS (5)
  1. FLEXERIL [Concomitant]
  2. VYTORIN [Concomitant]
  3. LISINOPRIL AND HYDROCHLOROTHIAZIDE [Concomitant]
  4. XAM (VITAMINS NOS) [Concomitant]
  5. TASIGNA [Suspect]
     Indication: CHRONIC MYELOID LEUKAEMIA
     Dosage: 300 MG, BID, ORAL
     Route: 048
     Dates: start: 20101129

REACTIONS (7)
  - NAUSEA [None]
  - FOOD CRAVING [None]
  - ALOPECIA [None]
  - BURNING SENSATION [None]
  - FATIGUE [None]
  - RASH GENERALISED [None]
  - PRURITUS [None]
